FAERS Safety Report 23338482 (Version 1)
Quarter: 2023Q4

REPORT INFORMATION
  Report Type: Spontaneous
  Country: US (occurrence: US)
  Receive Date: 20231226
  Receipt Date: 20231226
  Transmission Date: 20240110
  Serious: No
  Sender: FDA-Public Use
  Company Number: US-PURACAP-US-2023EPCSPO01854

PATIENT
  Age: 72 Year
  Sex: Female
  Weight: 115 kg

DRUGS (1)
  1. OMEGA-3-ACID ETHYL ESTERS [Suspect]
     Active Substance: OMEGA-3-ACID ETHYL ESTERS
     Indication: Blood triglycerides increased
     Route: 048
     Dates: start: 20231208, end: 20231210

REACTIONS (1)
  - Eructation [Recovered/Resolved]

NARRATIVE: CASE EVENT DATE: 20231208
